FAERS Safety Report 5053312-5 (Version None)
Quarter: 2006Q2

REPORT INFORMATION
  Report Type: 
  Country: None (occurrence: None)
  Receive Date: 20060614
  Receipt Date: 20060308
  Transmission Date: 20061013
  Serious: Yes (Other)
  Sender: FDA-Public Use
  Company Number: 439722

PATIENT
  Sex: Female

DRUGS (1)
  1. BONIVA [Suspect]
     Indication: DRUG USE FOR UNKNOWN INDICATION
     Dosage: 1 PER MONTH     ORAL
     Route: 048

REACTIONS (3)
  - FATIGUE [None]
  - MUSCLE SPASMS [None]
  - SYSTEMIC LUPUS ERYTHEMATOSUS [None]
